FAERS Safety Report 23488120 (Version 1)
Quarter: 2024Q1

REPORT INFORMATION
  Report Type: Spontaneous
  Country: US (occurrence: None)
  Receive Date: 20240206
  Receipt Date: 20240206
  Transmission Date: 20240409
  Serious: Yes (Other)
  Sender: FDA-Public Use
  Company Number: None

PATIENT
  Age: 73 Year
  Sex: Male

DRUGS (1)
  1. LENALIDOMIDE [Suspect]
     Active Substance: LENALIDOMIDE
     Indication: Plasma cell myeloma
     Dosage: FREQUENCY : DAILY;?
     Route: 048
     Dates: start: 20210607

REACTIONS (5)
  - Cerebral infarction [None]
  - Aphasia [None]
  - Basilar artery aneurysm [None]
  - Treatment failure [None]
  - Creatinine renal clearance increased [None]

NARRATIVE: CASE EVENT DATE: 20240120
